FAERS Safety Report 6759059-9 (Version None)
Quarter: 2010Q2

REPORT INFORMATION
  Report Type: 
  Country: None (occurrence: None)
  Receive Date: 20100603
  Receipt Date: 20100517
  Transmission Date: 20101027
  Serious: Yes (Hospitalization, Other)
  Sender: FDA-Public Use
  Company Number: 1-22660660

PATIENT
  Age: 81 Year
  Sex: Female

DRUGS (8)
  1. WARFARIN SODIUM [Suspect]
     Indication: THROMBOSIS PROPHYLAXIS
     Dosage: ORAL
     Route: 048
     Dates: start: 20100203
  2. BISOPROLOL [Concomitant]
  3. LOSARTAN POTASSIUM [Concomitant]
  4. ACETYLSALICYLIC ACID [Concomitant]
  5. CLORAZEPATE DIPOTASSIUM [Concomitant]
  6. OPIPRAMOL [Concomitant]
  7. KETOPROFEN [Concomitant]
  8. PANTOPRAZOLE [Concomitant]

REACTIONS (9)
  - ACCIDENTAL OVERDOSE [None]
  - ACTIVATED PARTIAL THROMBOPLASTIN TIME PROLONGED [None]
  - ANAL HAEMORRHAGE [None]
  - BLOOD GLUCOSE INCREASED [None]
  - EPISTAXIS [None]
  - HAEMATOCHEZIA [None]
  - HAEMORRHOIDS [None]
  - INTERNATIONAL NORMALISED RATIO INCREASED [None]
  - THROMBOSIS [None]
